FAERS Safety Report 7626662-3 (Version None)
Quarter: 2011Q3

REPORT INFORMATION
  Report Type: 
  Country: None (occurrence: None)
  Receive Date: 20110721
  Receipt Date: 20110607
  Transmission Date: 20111222
  Serious: No
  Sender: FDA-Public Use
  Company Number: US-NOVEN-11US002579

PATIENT

DRUGS (1)
  1. FENTANYL [Suspect]
     Indication: PAIN
     Dosage: 100 MCG/HR, UNKNOWN
     Route: 062

REACTIONS (2)
  - INADEQUATE ANALGESIA [None]
  - PRODUCT QUALITY ISSUE [None]
